FAERS Safety Report 7800417-9 (Version None)
Quarter: 2011Q4

REPORT INFORMATION
  Report Type: 
  Country: None (occurrence: None)
  Receive Date: 20111004
  Receipt Date: 20110928
  Transmission Date: 20120403
  Serious: Yes (Other)
  Sender: FDA-Public Use
  Company Number: AUR-APL-2011-05016

PATIENT
  Age: 76 Year
  Sex: Female
  Weight: 67 kg

DRUGS (18)
  1. SIMVASTATIN [Suspect]
     Indication: PRODUCT USED FOR UNKNOWN INDICATION
     Dates: start: 20110901
  2. SIMVASTATIN [Suspect]
     Indication: PRODUCT USED FOR UNKNOWN INDICATION
     Dates: start: 20110725, end: 20110822
  3. CALCICHEW D3 (LEKOVIT CA) [Concomitant]
  4. HYDROXOCOBALAMIN [Concomitant]
  5. GABAPENTIN [Concomitant]
  6. RAMIPRIL [Concomitant]
  7. LOFEPRAMINE (LOFEPRAMINE) [Concomitant]
  8. TRIMETHOPRIM [Concomitant]
  9. CLOPIDOGREL [Concomitant]
  10. OMEPRAZOLE [Concomitant]
  11. BECLOMETHASONE DIPROPIONATE [Concomitant]
  12. DOCUSATE SODIUM (DOCUSATE SODIUM) [Concomitant]
  13. MEPTAZINOL (MEPTAZINOL) [Concomitant]
  14. ACETAMINOPHEN [Concomitant]
  15. SLOZEM (DILTIAZEM HYDROCHLORIDE) [Concomitant]
  16. AQUEOUS CREAM (CETOSTEARYL ALCOHOL) [Concomitant]
  17. HYPROMELLOSE (HYPROMELLOSE) [Concomitant]
  18. ZOPICLONE (ZOPICLONE) [Concomitant]

REACTIONS (1)
  - CONTUSION [None]
